FAERS Safety Report 12663828 (Version 1)
Quarter: 2016Q3

REPORT INFORMATION
  Report Type: Spontaneous
  Country: US (occurrence: US)
  Receive Date: 20160818
  Receipt Date: 20160818
  Transmission Date: 20161109
  Serious: No
  Sender: FDA-Public Use
  Company Number: US-BAYER-2016-160889

PATIENT
  Sex: Female
  Weight: 81.63 kg

DRUGS (1)
  1. ALEVE [Suspect]
     Active Substance: NAPROXEN SODIUM
     Indication: BACK PAIN
     Dosage: 6 TO 12 HOURS BETWEEN DOSES FOR 2 WEEKS
     Dates: end: 20160817

REACTIONS (2)
  - Drug ineffective [None]
  - Product use issue [None]
